FAERS Safety Report 8462571-8 (Version None)
Quarter: 2012Q2

REPORT INFORMATION
  Report Type: 
  Country: None (occurrence: None)
  Receive Date: 20120607
  Receipt Date: 20120521
  Transmission Date: 20120825
  Serious: Yes (Hospitalization, Other)
  Sender: FDA-Public Use
  Company Number: P0575

PATIENT
  Age: 83 Year
  Sex: Male

DRUGS (20)
  1. AMLODIPINE [Concomitant]
  2. DIPHENHYDRAMINE HCL [Concomitant]
  3. CALCIUM CITRATE [Concomitant]
  4. NITROGLYCERIN [Concomitant]
  5. OMEPRAZOLE [Concomitant]
  6. ACETYLSALICYLIC ACID SRT [Concomitant]
  7. SIPULEUCEL-T (SIPULEUCEL-T) (INFUSION) [Suspect]
     Indication: PROSTATE CANCER METASTATIC
     Dosage: INTRAVENOUS
     Route: 042
     Dates: start: 20120420, end: 20120420
  8. METFORMIN HCL [Concomitant]
  9. FUROSEMIDE [Concomitant]
  10. LEUPROLIDE ACETATE [Concomitant]
  11. MULTIVITAMIN [Concomitant]
  12. OXYCODONE HCL [Concomitant]
  13. ACETAMINOPHEN [Concomitant]
  14. ASCORBIC ACID [Concomitant]
  15. CHOLECALCIFEROL + VITAMIN D (COLECALCIFEROL) [Concomitant]
  16. ZOLEDRONIC ACID [Concomitant]
  17. ALBUTEROL [Concomitant]
  18. FISH OIL [Concomitant]
  19. LISINOPRIL [Concomitant]
  20. ROSUVASTATIN [Concomitant]

REACTIONS (11)
  - PEPTIC ULCER [None]
  - FATIGUE [None]
  - DECREASED APPETITE [None]
  - GASTROINTESTINAL HAEMORRHAGE [None]
  - FAECES DISCOLOURED [None]
  - ANAEMIA [None]
  - HAEMATURIA [None]
  - ABDOMINAL PAIN [None]
  - ASTHENIA [None]
  - THROMBOCYTOPENIA [None]
  - HYPOTENSION [None]
